FAERS Safety Report 20513892 (Version 2)
Quarter: 2023Q1

REPORT INFORMATION
  Report Type: Spontaneous
  Country: US (occurrence: US)
  Receive Date: 20220224
  Receipt Date: 20230307
  Transmission Date: 20230417
  Serious: Yes (Other)
  Sender: FDA-Public Use
  Company Number: US-AMNEAL PHARMACEUTICALS-2021-AMRX-03844

PATIENT
  Sex: Female

DRUGS (2)
  1. RYTARY [Suspect]
     Active Substance: CARBIDOPA\LEVODOPA
     Indication: Parkinson^s disease
     Dosage: 4 CAPSULES, 3 /DAY
     Route: 048
  2. RYTARY [Suspect]
     Active Substance: CARBIDOPA\LEVODOPA
     Dosage: 2 CAPSULES, (48.75MG) 4 /DAY
     Route: 048
     Dates: start: 20220714

REACTIONS (9)
  - Suicidal ideation [Unknown]
  - Nocturia [Unknown]
  - Inability to afford medication [Unknown]
  - Malaise [Unknown]
  - Dizziness [Unknown]
  - Tremor [Unknown]
  - General physical health deterioration [Unknown]
  - Asthenia [Unknown]
  - Depression [Unknown]
